FAERS Safety Report 8238270-4 (Version None)
Quarter: 2012Q1

REPORT INFORMATION
  Report Type: 
  Country: None (occurrence: None)
  Receive Date: 20120327
  Receipt Date: 20120314
  Transmission Date: 20120608
  Serious: Yes (Other)
  Sender: FDA-Public Use
  Company Number: US-ROCHE-1052390

PATIENT
  Sex: Female

DRUGS (8)
  1. FOSAMAX [Suspect]
     Indication: OSTEOPOROSIS
     Dates: start: 20080101, end: 20110101
  2. FOSAMAX [Suspect]
     Indication: OSTEOPENIA
  3. RECLAST [Suspect]
     Indication: OSTEOPENIA
  4. ZOMETA [Suspect]
     Indication: OSTEOPOROSIS
     Dates: start: 20080101, end: 20110101
  5. RECLAST [Suspect]
     Indication: OSTEOPOROSIS
     Dates: start: 20080101, end: 20110101
  6. BONIVA [Suspect]
     Indication: OSTEOPOROSIS
     Dates: start: 20080101, end: 20110101
  7. BONIVA [Suspect]
     Indication: OSTEOPENIA
  8. ZOMETA [Suspect]
     Indication: OSTEOPENIA

REACTIONS (2)
  - FEMUR FRACTURE [None]
  - EMOTIONAL DISTRESS [None]
